FAERS Safety Report 7780080-6 (Version None)
Quarter: 2011Q3

REPORT INFORMATION
  Report Type: 
  Country: None (occurrence: None)
  Receive Date: 20110927
  Receipt Date: 20110921
  Transmission Date: 20111222
  Serious: Yes (Other)
  Sender: FDA-Public Use
  Company Number: JP-PFIZER INC-2011223630

PATIENT
  Age: 45 Year
  Sex: Male

DRUGS (2)
  1. BORTEZOMIB [Suspect]
     Indication: MULTIPLE MYELOMA
     Dosage: 1.4 MG/M2
  2. VFEND [Suspect]
     Indication: INFECTION PROPHYLAXIS
     Dosage: UNK

REACTIONS (1)
  - ILEUS PARALYTIC [None]
